FAERS Safety Report 8310623-5 (Version None)
Quarter: 2012Q2

REPORT INFORMATION
  Report Type: 
  Country: None (occurrence: None)
  Receive Date: 20120425
  Receipt Date: 20120425
  Transmission Date: 20120825
  Serious: Yes (Other)
  Sender: FDA-Public Use
  Company Number: None

PATIENT
  Age: 71 Year
  Sex: Male
  Weight: 114.3 kg

DRUGS (2)
  1. AFRIN [Suspect]
     Indication: NASAL CONGESTION
     Dosage: 2 SPRAYS INTO HEACH NOSTRIL
     Route: 045
  2. AFRIN [Suspect]
     Indication: NASAL CONGESTION
     Dosage: 2 SPRAYS INTO HEACH NOSTRIL
     Route: 045
     Dates: start: 20120422, end: 20120423

REACTIONS (1)
  - CYANOPSIA [None]
